FAERS Safety Report 16323484 (Version 1)
Quarter: 2019Q2

REPORT INFORMATION
  Report Type: Spontaneous
  Country: US (occurrence: US)
  Receive Date: 20190517
  Receipt Date: 20190517
  Transmission Date: 20190711
  Serious: No
  Sender: FDA-Public Use
  Company Number: US-LUPIN PHARMACEUTICALS INC.-2019-01151

PATIENT
  Age: 8 Year
  Sex: Male

DRUGS (1)
  1. CLONIDINE HYDROCHLORIDE EXTENDED-RELEASE TABLETS, 0.1 MG [Suspect]
     Active Substance: CLONIDINE HYDROCHLORIDE
     Indication: ATTENTION DEFICIT/HYPERACTIVITY DISORDER
     Dosage: 0.1 MILLIGRAM, QD, EVERY EVENING
     Route: 048
     Dates: start: 20190208

REACTIONS (1)
  - Breath odour [Not Recovered/Not Resolved]

NARRATIVE: CASE EVENT DATE: 201902
